FAERS Safety Report 8592484-2 (Version None)
Quarter: 2012Q3

REPORT INFORMATION
  Report Type: 
  Country: None (occurrence: None)
  Receive Date: 20120814
  Receipt Date: 20120808
  Transmission Date: 20120928
  Serious: Yes (Hospitalization)
  Sender: FDA-Public Use
  Company Number: TW-009507513-2012SP033794

PATIENT

DRUGS (8)
  1. ASENAPINE MALEATE-SCHIZOPHRENIA [Suspect]
     Indication: SCHIZOPHRENIA
     Dosage: UNK UNK, BID
     Route: 060
     Dates: start: 20120514, end: 20120516
  2. TREMIN [Concomitant]
     Indication: EXTRAPYRAMIDAL DISORDER
     Dosage: DRUG FORM : UNKNOWN
     Route: 048
     Dates: start: 20120505, end: 20120521
  3. ZOLPIDEM TARTRATE [Concomitant]
     Indication: INSOMNIA
     Dosage: DRUG FORM: UNKNOWN, DOSE: 5-10 MG(ONCE DAILY)
     Route: 048
     Dates: start: 20120512
  4. PROPRANOLOL HYDROCHLORIDE [Concomitant]
     Indication: AKATHISIA
     Dosage: DRUG FORM: UNKNOWN, DOSE: 10-20 MG
     Route: 048
     Dates: start: 20120607, end: 20120616
  5. LORAZEPAM [Concomitant]
     Indication: ANXIETY
     Dosage: 1 MG, QD
     Route: 048
     Dates: start: 20120507
  6. ALPRAZOLAM [Concomitant]
     Indication: ANXIETY
     Dosage: DRUG FORM: UNKNOWN, DOSE: 0.5-1 MG(DAILY)
     Route: 048
     Dates: start: 20120604, end: 20120616
  7. ASENAPINE MALEATE-SCHIZOPHRENIA [Suspect]
     Dosage: 10 MG, BID
     Route: 060
     Dates: start: 20120517, end: 20120617
  8. ACETAMINOPHEN [Concomitant]
     Indication: HEADACHE
     Dosage: DRUG FORM: UNKNOWN
     Route: 048
     Dates: start: 20120528, end: 20120528

REACTIONS (1)
  - SCHIZOPHRENIA [None]
